FAERS Safety Report 9668701 (Version 1)
Quarter: 2013Q4

REPORT INFORMATION
  Report Type: Spontaneous
  Country: US (occurrence: US)
  Receive Date: 20131105
  Receipt Date: 20131105
  Transmission Date: 20140711
  Serious: No
  Sender: FDA-Public Use
  Company Number: US-ENDO PHARMACEUTICALS INC.-PRED20130001

PATIENT
  Age: 72 Year
  Sex: Female

DRUGS (4)
  1. PREDNISONE TABLETS [Suspect]
     Indication: INTERVERTEBRAL DISC PROTRUSION
     Dosage: UNK
  2. PREDNISONE TABLETS [Suspect]
     Indication: NERVE INJURY
  3. RELAFEN [Concomitant]
  4. MAALOX [Concomitant]
     Indication: DYSPEPSIA
     Dosage: 2-3 TEASPOONS
     Route: 048
     Dates: start: 1997, end: 2011

REACTIONS (2)
  - Muscle disorder [Recovered/Resolved]
  - Pain in extremity [Recovered/Resolved]
